FAERS Safety Report 20812416 (Version 1)
Quarter: 2022Q2

REPORT INFORMATION
  Report Type: Spontaneous
  Country: US (occurrence: US)
  Receive Date: 20220511
  Receipt Date: 20220511
  Transmission Date: 20220721
  Serious: No
  Sender: FDA-Public Use
  Company Number: US-BRISTOL-MYERS SQUIBB COMPANY-2022-037296

PATIENT
  Age: 32 Year
  Sex: Male

DRUGS (3)
  1. ZEPOSIA [Suspect]
     Active Substance: OZANIMOD HYDROCHLORIDE
     Indication: Colitis ulcerative
     Dosage: DOSE: UNKNOWN, FREQUENCY: UNKNOWN
     Route: 065
  2. PREDNISONE [Suspect]
     Active Substance: PREDNISONE
     Indication: Product used for unknown indication
     Dosage: DOSE: UNKNOWN, FREQUENCY: UNKNOWN
     Route: 065
  3. APRISO [Suspect]
     Active Substance: MESALAMINE
     Indication: Product used for unknown indication
     Dosage: DOSE: UNKNOWN, FREQUENCY: UNKNOWN
     Route: 065

REACTIONS (5)
  - Drug ineffective [Unknown]
  - Frequent bowel movements [Unknown]
  - Appetite disorder [Unknown]
  - Diarrhoea [Unknown]
  - Condition aggravated [Not Recovered/Not Resolved]

NARRATIVE: CASE EVENT DATE: 20210501
